FAERS Safety Report 5874937-0 (Version None)
Quarter: 2008Q3

REPORT INFORMATION
  Report Type: 
  Country: None (occurrence: None)
  Receive Date: 20080909
  Receipt Date: 20080904
  Transmission Date: 20090109
  Serious: Yes (Other)
  Sender: FDA-Public Use
  Company Number: US-ASTRAZENECA-2008UW18112

PATIENT
  Age: 646 Month
  Sex: Female
  Weight: 123.4 kg

DRUGS (11)
  1. CRESTOR [Suspect]
     Indication: BLOOD CHOLESTEROL INCREASED
     Route: 048
  2. VICODIN [Concomitant]
  3. NEXIUM [Concomitant]
     Route: 048
  4. NORVASC [Concomitant]
  5. LASIX [Concomitant]
  6. COUMADIN [Concomitant]
  7. SINGULAIR [Concomitant]
  8. EFFEXOR [Concomitant]
  9. ADVAIR DISKUS 100/50 [Concomitant]
  10. ZOPINEX [Concomitant]
  11. OXYGEN [Concomitant]

REACTIONS (3)
  - DIALYSIS [None]
  - PULMONARY OEDEMA [None]
  - RENAL FAILURE [None]
